FAERS Safety Report 5131616-5 (Version None)
Quarter: 2006Q4

REPORT INFORMATION
  Report Type: 
  Country: None (occurrence: None)
  Receive Date: 20061020
  Receipt Date: 20060801
  Transmission Date: 20070319
  Serious: Yes (Death)
  Sender: FDA-Public Use
  Company Number: IT-SANOFI-SYNTHELABO-D01200603442

PATIENT
  Sex: Male
  Weight: 66 kg

DRUGS (23)
  1. SR57746 OR PLACEBO [Suspect]
     Indication: NEUROLOGICAL SYMPTOM
     Route: 048
     Dates: start: 20060211, end: 20060620
  2. OXYGEN [Concomitant]
     Dates: start: 20060621
  3. PHYSIOLOGICAL SALINE [Concomitant]
     Dates: start: 20060701
  4. CHLORPHENIRAMINE MALEATE [Concomitant]
     Dates: start: 20060707
  5. ANFOTERICINA [Concomitant]
     Dates: start: 20060707, end: 20060709
  6. TRIASPORIN [Concomitant]
     Dates: start: 20060706, end: 20060707
  7. PANTOPRAZOLE SODIUM [Concomitant]
     Dates: start: 20060705, end: 20060709
  8. ALOPERI DOLO [Concomitant]
     Dates: start: 20060704
  9. MORPHINE [Concomitant]
     Dates: start: 20060704
  10. FLUCONAZOLE [Concomitant]
     Dates: start: 20060630, end: 20060705
  11. PREDNISOLONE [Concomitant]
     Dates: start: 20060628
  12. LEVOFLOXACIN [Concomitant]
     Dates: start: 20060630
  13. CIPROFLOXACIN HCL [Concomitant]
     Dates: start: 20060608, end: 20060615
  14. DIAZEPAM [Concomitant]
     Dates: start: 20060620, end: 20060709
  15. DIAZEPAM [Concomitant]
     Dates: start: 20060709
  16. ACETAMINOPHEN [Concomitant]
     Dates: start: 20060620, end: 20060709
  17. OMEPRAZOLE [Concomitant]
     Dates: start: 20060620, end: 20060704
  18. PREDNISONE TAB [Concomitant]
     Dates: start: 20060620, end: 20060627
  19. AZTREONAM [Concomitant]
     Route: 042
     Dates: start: 20060620, end: 20060629
  20. CLARITHROMYCIN [Concomitant]
     Dates: start: 20060620, end: 20060709
  21. LEUCOVORIN CALCIUM [Suspect]
     Route: 042
     Dates: start: 20060606, end: 20060606
  22. FLUOROURACIL [Suspect]
     Dosage: 400 MG/M? (720MG) IV BOLUS D1+D2 FOLLOWED BY 5-FU 2400 MG/M? (4320MG) OVER 46HOUR CONTINUOUS INFUSIO
     Route: 042
     Dates: start: 20060606, end: 20060608
  23. OXALIPLATIN [Suspect]
     Route: 042
     Dates: start: 20060606, end: 20060606

REACTIONS (7)
  - BLOOD PRESSURE SYSTOLIC INCREASED [None]
  - NEUTROPHIL COUNT INCREASED [None]
  - PNEUMONITIS [None]
  - PULMONARY FIBROSIS [None]
  - RESPIRATORY DISORDER [None]
  - SEPTIC SHOCK [None]
  - SOMNOLENCE [None]
